FAERS Safety Report 21392311 (Version 1)
Quarter: 2022Q3

REPORT INFORMATION
  Report Type: Report from Study
  Country: AU (occurrence: None)
  Receive Date: 20220929
  Receipt Date: 20220929
  Transmission Date: 20221027
  Serious: Yes (Other)
  Sender: FDA-Public Use
  Company Number: AU-Merck Healthcare KGaA-9353221

PATIENT

DRUGS (1)
  1. BAVENCIO [Suspect]
     Active Substance: AVELUMAB
     Indication: Product used for unknown indication

REACTIONS (3)
  - Myocardial ischaemia [Unknown]
  - Cardiac failure [Unknown]
  - Malaise [Unknown]
